FAERS Safety Report 5229774-7 (Version None)
Quarter: 2007Q1

REPORT INFORMATION
  Report Type: 
  Country: None (occurrence: None)
  Receive Date: 20070206
  Receipt Date: 20070122
  Transmission Date: 20070707
  Serious: Yes (Hospitalization, Other)
  Sender: FDA-Public Use
  Company Number: US-PFIZER INC-2006034831

PATIENT
  Sex: Male
  Weight: 86.2 kg

DRUGS (1)
  1. BEXTRA [Suspect]
     Indication: MUSCULOSKELETAL CHEST PAIN
     Dates: start: 20040908, end: 20041010

REACTIONS (1)
  - CEREBROVASCULAR ACCIDENT [None]
